FAERS Safety Report 13756545 (Version 3)
Quarter: 2018Q3

REPORT INFORMATION
  Report Type: Spontaneous
  Country: None (occurrence: US)
  Receive Date: 20170714
  Receipt Date: 20180705
  Transmission Date: 20181010
  Serious: No
  Sender: FDA-Public Use
  Company Number: US-AMAG PHARMACEUTICALS, INC.-AMAG201601406

PATIENT
  Sex: Female
  Weight: 93.79 kg

DRUGS (4)
  1. CARAFATE [Concomitant]
     Active Substance: SUCRALFATE
     Indication: GASTRITIS
  2. FERAHEME [Suspect]
     Active Substance: FERUMOXYTOL NON-STOICHIOMETRIC MAGNETITE
     Dosage: 510 MG, SINGLE
     Route: 041
     Dates: start: 20160728, end: 20160728
  3. PRILOSEC [Concomitant]
     Active Substance: OMEPRAZOLE MAGNESIUM
     Indication: DYSPEPSIA
  4. FERAHEME [Suspect]
     Active Substance: FERUMOXYTOL NON-STOICHIOMETRIC MAGNETITE
     Indication: IRON DEFICIENCY ANAEMIA
     Dosage: 510 MG, SINGLE
     Route: 041
     Dates: start: 20160721, end: 20160721

REACTIONS (1)
  - Extravasation [Recovered/Resolved]

NARRATIVE: CASE EVENT DATE: 20160721
